FAERS Safety Report 12198112 (Version 1)
Quarter: 2016Q1

REPORT INFORMATION
  Report Type: Spontaneous
  Country: US (occurrence: None)
  Receive Date: 20160321
  Receipt Date: 20160321
  Transmission Date: 20160526
  Serious: Yes (Disabling)
  Sender: FDA-Public Use
  Company Number: None

PATIENT
  Age: 62 Year
  Sex: Female
  Weight: 86.18 kg

DRUGS (5)
  1. LOSARTAN/HCTZ [Concomitant]
     Active Substance: HYDROCHLOROTHIAZIDE\LOSARTAN
  2. LEVOTHYROXIN [Concomitant]
     Active Substance: LEVOTHYROXINE
  3. AMLODIPINE BESYLATE. [Concomitant]
     Active Substance: AMLODIPINE BESYLATE
  4. SUGAR FREE LEMON MINT HERB THROAT DROPS [Suspect]
     Active Substance: MENTHOL
     Indication: DRY THROAT
     Dates: start: 20160319, end: 20160319
  5. ONE A DAY MULTIVITAMIN KROGER BRAND [Concomitant]

REACTIONS (5)
  - Pain [None]
  - Diarrhoea [None]
  - Muscle spasms [None]
  - Incorrect dose administered [None]
  - Product label confusion [None]

NARRATIVE: CASE EVENT DATE: 20160319
